FAERS Safety Report 23643428 (Version 1)
Quarter: 2024Q1

REPORT INFORMATION
  Report Type: Spontaneous
  Country: US (occurrence: US)
  Receive Date: 20240318
  Receipt Date: 20240318
  Transmission Date: 20240410
  Serious: Yes (Other)
  Sender: FDA-Public Use
  Company Number: US-AMGEN-USASP2024051894

PATIENT
  Age: 41 Year
  Sex: Male

DRUGS (4)
  1. RIABNI [Suspect]
     Active Substance: RITUXIMAB-ARRX
     Indication: Neuromyelitis optica spectrum disorder
     Dosage: UNK
     Route: 065
     Dates: start: 202303
  2. RITUXAN [Concomitant]
     Active Substance: RITUXIMAB
  3. TRUXIMA [Concomitant]
     Active Substance: RITUXIMAB-ABBS
  4. DALFAMPRIDINE [Concomitant]
     Active Substance: DALFAMPRIDINE

REACTIONS (1)
  - Disease progression [Unknown]

NARRATIVE: CASE EVENT DATE: 20230101
